FAERS Safety Report 8564094-4 (Version None)
Quarter: 2012Q3

REPORT INFORMATION
  Report Type: 
  Country: None (occurrence: None)
  Receive Date: 20120723
  Receipt Date: 20120706
  Transmission Date: 20120928
  Serious: Yes (Hospitalization, Other)
  Sender: FDA-Public Use
  Company Number: JPI-P-012542

PATIENT
  Age: 35 Year
  Sex: Male
  Weight: 95.2554 kg

DRUGS (3)
  1. MODAFINIL [Concomitant]
  2. XYREM [Suspect]
     Indication: NARCOLEPSY
     Dosage: 4.5 GM (2.25 GM,2 IN 1 D),ORAL ; 7 GM, 3.5 GM,2 IN 1 D),ORAL
     Route: 048
     Dates: start: 20090108
  3. XYREM [Suspect]
     Indication: NARCOLEPSY
     Dosage: 4.5 GM (2.25 GM,2 IN 1 D),ORAL ; 7 GM, 3.5 GM,2 IN 1 D),ORAL
     Route: 048
     Dates: start: 20080502, end: 20090107

REACTIONS (7)
  - CONDITION AGGRAVATED [None]
  - MUSCLE SPASMS [None]
  - INTERVERTEBRAL DISC PROTRUSION [None]
  - ARTHRALGIA [None]
  - HEADACHE [None]
  - HYPOAESTHESIA [None]
  - MUSCLE TIGHTNESS [None]
